FAERS Safety Report 24865507 (Version 1)
Quarter: 2025Q1

REPORT INFORMATION
  Report Type: Spontaneous
  Country: CN (occurrence: CN)
  Receive Date: 20250121
  Receipt Date: 20250121
  Transmission Date: 20250409
  Serious: Yes (Hospitalization)
  Sender: ROCHE
  Company Number: CN-CHEPLA-2024013709

PATIENT
  Age: 42 Year
  Sex: Male
  Weight: 54 kg

DRUGS (3)
  1. CAPECITABINE [Suspect]
     Active Substance: CAPECITABINE
     Indication: Colon cancer
     Dosage: APPROVAL NO. GYZZ H20073024. THIRD CYCLE OF CAPEOX + BEVACIZUMAB CHEMOTHERAPY
     Route: 048
     Dates: start: 20240807, end: 20240820
  2. BEVACIZUMAB [Suspect]
     Active Substance: BEVACIZUMAB
     Indication: Colon cancer
     Dosage: ROA: INTRAVENOUS INFUSION. APPROVAL NO. GYZZ S20190040. THIRD CYCLE OF CAPEOX + BEVACIZUMAB CHEMOTHE
     Route: 042
     Dates: start: 20240807, end: 20240807
  3. OXALIPLATIN [Suspect]
     Active Substance: OXALIPLATIN
     Indication: Colon cancer
     Dosage: ROA: IV INFUSION. APPROVAL NO. GYZZ J20150117. THIRD CYCLE OF CAPEOX + BEVACIZUMAB CHEMOTHERAPY
     Route: 042
     Dates: start: 20240807, end: 20240807

REACTIONS (1)
  - Myelosuppression [Recovering/Resolving]

NARRATIVE: CASE EVENT DATE: 20240905
